FAERS Safety Report 11113271 (Version 2)
Quarter: 2015Q2

REPORT INFORMATION
  Report Type: Spontaneous
  Country: US (occurrence: US)
  Receive Date: 20150514
  Receipt Date: 20150610
  Transmission Date: 20150821
  Serious: Yes (Hospitalization, Other)
  Sender: FDA-Public Use
  Company Number: US-PFIZER INC-2015157964

PATIENT
  Age: 51 Year
  Sex: Female

DRUGS (1)
  1. LYRICA [Suspect]
     Active Substance: PREGABALIN
     Indication: FIBROMYALGIA
     Dosage: UNK
     Dates: start: 2011

REACTIONS (20)
  - Apparent death [Unknown]
  - Flushing [Unknown]
  - Nervousness [Unknown]
  - Depression [Unknown]
  - Dizziness [Unknown]
  - Malabsorption [Unknown]
  - Nasopharyngitis [Unknown]
  - Infection [Unknown]
  - Weight decreased [Unknown]
  - Chest pain [Unknown]
  - Onychoclasis [Unknown]
  - Dependence [Not Recovered/Not Resolved]
  - Alopecia [Unknown]
  - Gastrooesophageal reflux disease [Unknown]
  - Pain [Unknown]
  - Dumping syndrome [Not Recovered/Not Resolved]
  - Dyspnoea [Unknown]
  - Hyperhidrosis [Unknown]
  - Eating disorder [Unknown]
  - Nightmare [Unknown]

NARRATIVE: CASE EVENT DATE: 2011
